FAERS Safety Report 6538027-6 (Version None)
Quarter: 2010Q1

REPORT INFORMATION
  Report Type: 
  Country: None (occurrence: None)
  Receive Date: 20100112
  Receipt Date: 20100112
  Transmission Date: 20100710
  Serious: Yes (Disabling)
  Sender: FDA-Public Use
  Company Number: None

PATIENT
  Sex: Male
  Weight: 95.5 kg

DRUGS (8)
  1. HUMIRA [Suspect]
     Indication: PSORIASIS
     Dosage: 1X LOADING DOSE-80 MG THEN 40 MG EVERY OTHER WEEK INJECTION
     Route: 058
  2. LIPITOR [Concomitant]
  3. NAMENDA [Concomitant]
  4. EXELON [Concomitant]
  5. AVODART [Concomitant]
  6. AXONA MEDICINAL FOOD PRODUCT [Concomitant]
  7. FISH OIL [Concomitant]
  8. MULTI-VITAMIN [Concomitant]

REACTIONS (1)
  - MENTAL STATUS CHANGES [None]
